FAERS Safety Report 5745895-4 (Version None)
Quarter: 2008Q2

REPORT INFORMATION
  Report Type: 
  Country: None (occurrence: None)
  Receive Date: 20080520
  Receipt Date: 20080513
  Transmission Date: 20081010
  Serious: Yes (Death, Other)
  Sender: FDA-Public Use
  Company Number: 062-C5013-07030233

PATIENT
  Age: 71 Year
  Sex: Male
  Weight: 61 kg

DRUGS (8)
  1. CC-5013 (LENALIDOMIDE) (CAPSULES) [Suspect]
     Indication: MULTIPLE MYELOMA
     Dosage: 25 MG, DAY 1-21, ORAL
     Route: 048
     Dates: start: 20060901
  2. CC-5013 (LENALIDOMIDE) (CAPSULES) [Suspect]
     Indication: PLASMACYTOMA
     Dosage: 25 MG, DAY 1-21, ORAL
     Route: 048
     Dates: start: 20060901
  3. VFEND [Concomitant]
  4. CIPROFLOXACIN [Concomitant]
  5. LINEZOLID [Concomitant]
  6. TRANSTEC (BUPRENORPHINE) [Concomitant]
  7. DOXY (DOXYCYCLINE HYDROCHLORIDE) [Concomitant]
  8. DIFLUCAN [Concomitant]

REACTIONS (4)
  - GRAND MAL CONVULSION [None]
  - MALIGNANT NEOPLASM PROGRESSION [None]
  - MULTIPLE MYELOMA [None]
  - PNEUMONIA [None]
